FAERS Safety Report 4891361-8 (Version None)
Quarter: 2005Q4

REPORT INFORMATION
  Report Type: 
  Country: None (occurrence: None)
  Receive Date: 20051223
  Receipt Date: 20051004
  Transmission Date: 20060501
  Serious: No
  Sender: FDA-Public Use
  Company Number: 218361

PATIENT
  Sex: Female

DRUGS (5)
  1. AVASTIN [Suspect]
     Indication: LUNG ADENOCARCINOMA
     Dosage: Q3W
     Dates: start: 20050101
  2. TRACEVA (ERLOTINIB) TABELT [Concomitant]
  3. SUPPLEMENTAL OXYGEN (OXYGEN) [Concomitant]
  4. MAGNESIUM SULFATE [Concomitant]
  5. ZOMETA [Concomitant]

REACTIONS (2)
  - CONSTIPATION [None]
  - GASTROINTESTINAL PAIN [None]
